FAERS Safety Report 17072279 (Version 1)
Quarter: 2019Q4

REPORT INFORMATION
  Report Type: Spontaneous
  Country: US (occurrence: US)
  Receive Date: 20191125
  Receipt Date: 20191125
  Transmission Date: 20200122
  Serious: No
  Sender: FDA-Public Use
  Company Number: US-BAYER-2019-211192

PATIENT

DRUGS (3)
  1. DESVENLAFAXINE. [Concomitant]
     Active Substance: DESVENLAFAXINE
     Indication: AFFECTIVE DISORDER
     Dosage: 1 DF, QD
  2. ALEVE [Suspect]
     Active Substance: NAPROXEN SODIUM
  3. DESVENLAFAXINE. [Concomitant]
     Active Substance: DESVENLAFAXINE
     Indication: ANXIETY

REACTIONS (1)
  - Drug hypersensitivity [Unknown]
